FAERS Safety Report 7741178-1 (Version None)
Quarter: 2011Q3

REPORT INFORMATION
  Report Type: 
  Country: None (occurrence: None)
  Receive Date: 20110909
  Receipt Date: 20110829
  Transmission Date: 20111222
  Serious: Yes (Other)
  Sender: FDA-Public Use
  Company Number: US-ELI_LILLY_AND_COMPANY-US201108009474

PATIENT
  Sex: Female

DRUGS (7)
  1. TRAZODONE HCL [Concomitant]
     Dosage: 100 MG, UNK
  2. STRATTERA [Suspect]
     Dosage: 25 MG, UNK
  3. STRATTERA [Suspect]
     Dosage: 10 MG, UNK
  4. RISPERIDONE [Concomitant]
     Dosage: 2 MG, UNK
  5. TRILEPTAL [Concomitant]
     Dosage: 300 MG, TID
  6. STRATTERA [Suspect]
     Dosage: 40 MG, UNK
     Dates: start: 20110718, end: 20110803
  7. STRATTERA [Suspect]
     Dosage: 18 MG, UNK

REACTIONS (2)
  - ARRHYTHMIA [None]
  - APPENDICITIS [None]
